FAERS Safety Report 21243839 (Version 2)
Quarter: 2022Q4

REPORT INFORMATION
  Report Type: Spontaneous
  Country: FR (occurrence: FR)
  Receive Date: 20220823
  Receipt Date: 20221210
  Transmission Date: 20230112
  Serious: Yes (Hospitalization, Other)
  Sender: FDA-Public Use
  Company Number: FR-BRISTOL-MYERS SQUIBB COMPANY-2022-090860

PATIENT

DRUGS (1)
  1. NIVOLUMAB [Suspect]
     Active Substance: NIVOLUMAB
     Indication: Malignant melanoma stage III
     Dosage: DOSE : NOT AVAILABLE;     FREQ : NOT AVAILABLE
     Route: 065

REACTIONS (1)
  - Cerebellar stroke [Unknown]

NARRATIVE: CASE EVENT DATE: 20220811
